FAERS Safety Report 10268398 (Version 3)
Quarter: 2014Q3

REPORT INFORMATION
  Report Type: Report from Study
  Country: US (occurrence: US)
  Receive Date: 20140630
  Receipt Date: 20140926
  Transmission Date: 20150326
  Serious: Yes (Death, Hospitalization)
  Sender: FDA-Public Use
  Company Number: US-BRISTOL-MYERS SQUIBB COMPANY-21066659

PATIENT
  Age: 80 Year
  Sex: Male
  Weight: 72.9 kg

DRUGS (2)
  1. IPILIMUMAB [Suspect]
     Active Substance: IPILIMUMAB
     Indication: MYELODYSPLASTIC SYNDROME
     Dosage: TOTAL DOSE ADMINISTERED 210 MG?LAST ADMINISTERED DATE 07MAR14
     Route: 042
     Dates: start: 20130719
  2. IPILIMUMAB [Suspect]
     Active Substance: IPILIMUMAB
     Indication: ACUTE MYELOID LEUKAEMIA
     Dosage: TOTAL DOSE ADMINISTERED 210 MG?LAST ADMINISTERED DATE 07MAR14
     Route: 042
     Dates: start: 20130719

REACTIONS (2)
  - Pneumonia [Not Recovered/Not Resolved]
  - Malignant neoplasm progression [Fatal]

NARRATIVE: CASE EVENT DATE: 20140610
